FAERS Safety Report 6727147-9 (Version None)
Quarter: 2010Q2

REPORT INFORMATION
  Report Type: 
  Country: None (occurrence: None)
  Receive Date: 20100517
  Receipt Date: 20100510
  Transmission Date: 20101027
  Serious: Yes (Other)
  Sender: FDA-Public Use
  Company Number: US-ASTRAZENECA-2010SE21149

PATIENT
  Age: 81 Year
  Sex: Female

DRUGS (3)
  1. NEXIUM [Suspect]
     Indication: HIATUS HERNIA
     Route: 048
  2. NEXIUM [Suspect]
     Route: 048
  3. DIOVAN [Concomitant]

REACTIONS (1)
  - SURGICAL FAILURE [None]
